FAERS Safety Report 17630160 (Version 5)
Quarter: 2020Q3

REPORT INFORMATION
  Report Type: Report from Study
  Country: ES (occurrence: ES)
  Receive Date: 20200406
  Receipt Date: 20200708
  Transmission Date: 20201102
  Serious: Yes (Hospitalization)
  Sender: FDA-Public Use
  Company Number: ES-JNJFOC-20200337276

PATIENT
  Age: 62 Year
  Sex: Male
  Weight: 98 kg

DRUGS (3)
  1. DARATUMUMAB [Suspect]
     Active Substance: DARATUMUMAB
     Indication: PLASMA CELL MYELOMA
     Dosage: MOST RECENT DOSE ON 02?MAR?2020
     Route: 058
     Dates: start: 20190315
  2. DEXAMETHASONE. [Suspect]
     Active Substance: DEXAMETHASONE
     Indication: PLASMA CELL MYELOMA
     Dosage: DAY 1, 8 AND 15 EVERY CYCLE OF 28 DAYS
     Route: 048
  3. CARFILZOMIB [Suspect]
     Active Substance: CARFILZOMIB
     Indication: PLASMA CELL MYELOMA
     Dosage: MOST RECENT DOSE 16?MAR?2020
     Route: 042
     Dates: start: 20190315

REACTIONS (1)
  - COVID-19 [Recovered/Resolved]

NARRATIVE: CASE EVENT DATE: 20200324
